FAERS Safety Report 17536701 (Version 1)
Quarter: 2020Q1

REPORT INFORMATION
  Report Type: Spontaneous
  Country: SE (occurrence: SE)
  Receive Date: 20200313
  Receipt Date: 20200313
  Transmission Date: 20200409
  Serious: Yes (Other)
  Sender: FDA-Public Use
  Company Number: SE-TEVA-2020-SE-1201123

PATIENT
  Sex: Female

DRUGS (1)
  1. ISOTRETIONIN ACTAVIS [Suspect]
     Active Substance: ISOTRETINOIN
     Route: 048
     Dates: end: 20200205

REACTIONS (6)
  - Suicidal ideation [Unknown]
  - Disturbance in attention [Unknown]
  - Memory impairment [Unknown]
  - Depression [Unknown]
  - Anxiety [Unknown]
  - Panic disorder [Unknown]
